FAERS Safety Report 8298170 (Version 3)
Quarter: 2013Q2

REPORT INFORMATION
  Report Type: Spontaneous
  Country: US (occurrence: US)
  Receive Date: 20111219
  Receipt Date: 20130502
  Transmission Date: 20140414
  Serious: No
  Sender: FDA-Public Use
  Company Number: US-ASTRAZENECA-2010SE54334

PATIENT
  Age: 67 Year
  Sex: Male
  Weight: 86.2 kg

DRUGS (17)
  1. CRESTOR [Suspect]
     Indication: HYPERCHOLESTEROLAEMIA
     Route: 048
     Dates: start: 201010, end: 201012
  2. CRESTOR [Suspect]
     Indication: BLOOD TRIGLYCERIDES INCREASED
     Route: 048
     Dates: start: 201010, end: 201012
  3. CRESTOR [Suspect]
     Indication: HYPERCHOLESTEROLAEMIA
     Route: 048
     Dates: start: 201012
  4. CRESTOR [Suspect]
     Indication: BLOOD TRIGLYCERIDES INCREASED
     Route: 048
     Dates: start: 201012
  5. CRESTOR [Suspect]
     Indication: HYPERCHOLESTEROLAEMIA
     Route: 048
     Dates: start: 201108, end: 20130408
  6. CRESTOR [Suspect]
     Indication: BLOOD TRIGLYCERIDES INCREASED
     Route: 048
     Dates: start: 201108, end: 20130408
  7. TOPROL XL [Suspect]
     Indication: HYPERTENSION
     Route: 048
     Dates: start: 20110413
  8. TOPROL XL [Suspect]
     Indication: ATRIAL FIBRILLATION
     Route: 048
     Dates: start: 20110413
  9. TOPROL XL [Suspect]
     Indication: HYPERTENSION
     Route: 048
  10. TOPROL XL [Suspect]
     Indication: ATRIAL FIBRILLATION
     Route: 048
  11. NEXIUM [Suspect]
     Indication: GASTROOESOPHAGEAL REFLUX DISEASE
     Route: 048
  12. WARFARIN [Concomitant]
     Indication: ATRIAL FIBRILLATION
  13. METOPROLOL [Concomitant]
  14. METOPROLOL TARTRATE [Concomitant]
     Indication: ATRIAL FIBRILLATION
  15. NIACIN [Concomitant]
  16. LAVASA [Concomitant]
  17. BETA-BLOCKER [Concomitant]

REACTIONS (20)
  - Nasopharyngitis [Unknown]
  - Bleeding time prolonged [Unknown]
  - Atrial fibrillation [Unknown]
  - Influenza like illness [Unknown]
  - Hyperhidrosis [Not Recovered/Not Resolved]
  - Feeling abnormal [Recovering/Resolving]
  - Sinusitis [Unknown]
  - Fatigue [Unknown]
  - Musculoskeletal pain [Not Recovered/Not Resolved]
  - High density lipoprotein decreased [Unknown]
  - Arthralgia [Unknown]
  - Arthralgia [Unknown]
  - Headache [Unknown]
  - Insomnia [Recovering/Resolving]
  - Abnormal dreams [Recovered/Resolved]
  - Drug prescribing error [Unknown]
  - Intentional drug misuse [Unknown]
  - Wrong technique in drug usage process [Unknown]
  - Drug dose omission [Not Recovered/Not Resolved]
  - Off label use [Unknown]
